FAERS Safety Report 5517055-3 (Version None)
Quarter: 2007Q4

REPORT INFORMATION
  Report Type: 
  Country: None (occurrence: None)
  Receive Date: 20071114
  Receipt Date: 20070725
  Transmission Date: 20080405
  Serious: No
  Sender: FDA-Public Use
  Company Number: A0666026A

PATIENT
  Age: 59 Year
  Sex: Female

DRUGS (3)
  1. COMMIT [Suspect]
     Dates: start: 20070704
  2. IBUPROFEN [Concomitant]
  3. FACE CREAM [Concomitant]

REACTIONS (2)
  - RASH [None]
  - URTICARIA [None]
